FAERS Safety Report 4686448-9 (Version None)
Quarter: 2005Q2

REPORT INFORMATION
  Report Type: 
  Country: None (occurrence: None)
  Receive Date: 20050606
  Receipt Date: 20050523
  Transmission Date: 20051028
  Serious: Yes (Other)
  Sender: FDA-Public Use
  Company Number: 2005081253

PATIENT
  Age: 19 Year
  Sex: Male

DRUGS (2)
  1. VIAGRA [Suspect]
     Indication: ILL-DEFINED DISORDER
     Dosage: 100 MG (1 IN 1 D)
  2. COCAINE (COCAINE) [Suspect]
     Indication: ILL-DEFINED DISORDER
     Dosage: NASAL
     Route: 045

REACTIONS (3)
  - DRUG ABUSER [None]
  - PRIAPISM [None]
  - SELF-MEDICATION [None]
